FAERS Safety Report 11454508 (Version 1)
Quarter: 2015Q3

REPORT INFORMATION
  Report Type: Spontaneous
  Country: US (occurrence: US)
  Receive Date: 20150831
  Receipt Date: 20150831
  Transmission Date: 20151125
  Serious: Yes (Other)
  Sender: FDA-Public Use
  Company Number: US-ELI_LILLY_AND_COMPANY-US201004002424

PATIENT
  Age: 51 Year
  Sex: Female

DRUGS (3)
  1. CYMBALTA [Suspect]
     Active Substance: DULOXETINE HYDROCHLORIDE
     Dosage: 90 MG, DAILY (1/D)
     Dates: start: 200910
  2. FLEXERIL [Concomitant]
     Active Substance: CYCLOBENZAPRINE HYDROCHLORIDE
     Dates: end: 201002
  3. CYMBALTA [Suspect]
     Active Substance: DULOXETINE HYDROCHLORIDE
     Indication: DIABETIC NEUROPATHY
     Dosage: 60 MG, DAILY (1/D)
     Dates: start: 2009, end: 200910

REACTIONS (7)
  - Hypertension [Unknown]
  - Weight decreased [Unknown]
  - Malaise [Unknown]
  - Drug ineffective [Unknown]
  - Paraesthesia [Unknown]
  - Headache [Unknown]
  - Tinnitus [Unknown]

NARRATIVE: CASE EVENT DATE: 2010
